FAERS Safety Report 8171261-0 (Version None)
Quarter: 2012Q1

REPORT INFORMATION
  Report Type: 
  Country: None (occurrence: None)
  Receive Date: 20120228
  Receipt Date: 20120213
  Transmission Date: 20120608
  Serious: Yes (Hospitalization, Other)
  Sender: FDA-Public Use
  Company Number: CA-JUTA GMBH-2012-02693

PATIENT
  Age: 55 Year
  Sex: Female

DRUGS (2)
  1. ALENDRONATE SODIUM [Suspect]
     Indication: OSTEOPOROSIS
     Dosage: 70 MG, 1/WEEK
     Route: 048
     Dates: start: 20060701, end: 20090101
  2. ZOLEDRONIC [Suspect]
     Indication: OSTEOPOROSIS
     Dosage: 5 MG, X 2 INFUSIONS
     Route: 042
     Dates: start: 20090201, end: 20100201

REACTIONS (3)
  - FOOT FRACTURE [None]
  - WRIST FRACTURE [None]
  - FEMUR FRACTURE [None]
